FAERS Safety Report 8966778 (Version 2)
Quarter: 2013Q1

REPORT INFORMATION
  Report Type: Spontaneous
  Country: US (occurrence: US)
  Receive Date: 20121217
  Receipt Date: 20130122
  Transmission Date: 20140127
  Serious: Yes (Other)
  Sender: FDA-Public Use
  Company Number: US-PFIZER INC-2012318510

PATIENT
  Age: 70 Year
  Sex: Female
  Weight: 77.1 kg

DRUGS (8)
  1. LIPITOR [Suspect]
     Indication: BLOOD CHOLESTEROL ABNORMAL
     Dosage: 20 MG,DAILY
     Dates: start: 1993
  2. EFFEXOR [Suspect]
     Indication: STRESS
     Dosage: 75 MG, TWO TIMES A DAY
     Dates: start: 1993
  3. EFFEXOR [Suspect]
     Indication: CARDIAC DISORDER
  4. EFFEXOR [Suspect]
     Indication: CHEST DISCOMFORT
  5. NORVASC [Suspect]
     Indication: STRESS
     Dosage: 5 MG,DAILY
     Dates: start: 1993
  6. NORVASC [Suspect]
     Indication: CARDIAC DISORDER
  7. NORVASC [Suspect]
     Indication: CHEST DISCOMFORT
  8. ATENOLOL [Concomitant]
     Indication: HYPERTENSION
     Dosage: 25 MG,DAILY

REACTIONS (2)
  - Glaucoma [Not Recovered/Not Resolved]
  - Chest pain [Unknown]
